FAERS Safety Report 4808145-9 (Version None)
Quarter: 2005Q4

REPORT INFORMATION
  Report Type: 
  Country: None (occurrence: None)
  Receive Date: 20051021
  Receipt Date: 20050207
  Transmission Date: 20060501
  Serious: Yes (Other)
  Sender: FDA-Public Use
  Company Number: USA050290131

PATIENT
  Sex: Female

DRUGS (2)
  1. ZYPREXA [Suspect]
     Indication: SLEEP DISORDER
     Dates: start: 20030201
  2. KLONOPIN [Concomitant]

REACTIONS (8)
  - DEEP VEIN THROMBOSIS [None]
  - DELUSION [None]
  - HUNGER [None]
  - PARANOIA [None]
  - PERSECUTORY DELUSION [None]
  - THINKING ABNORMAL [None]
  - VICTIM OF SEXUAL ABUSE [None]
  - WEIGHT INCREASED [None]
